FAERS Safety Report 17725262 (Version 1)
Quarter: 2020Q2

REPORT INFORMATION
  Report Type: Spontaneous
  Country: US (occurrence: US)
  Receive Date: 20200429
  Receipt Date: 20200429
  Transmission Date: 20200714
  Serious: No
  Sender: FDA-Public Use
  Company Number: NVSC2020US115854

PATIENT
  Age: 65 Year
  Sex: Female
  Weight: 61.22 kg

DRUGS (3)
  1. LENVIMA [Suspect]
     Active Substance: LENVATINIB
     Indication: RENAL CANCER
     Dosage: 18 MG, UNKNOWN
     Route: 048
     Dates: start: 20200408, end: 20200414
  2. EVEROLIMUS. [Suspect]
     Active Substance: EVEROLIMUS
     Indication: RENAL CANCER
     Dosage: 5 MG, UNKNOWN
     Route: 048
     Dates: start: 20200408
  3. LENVIMA [Suspect]
     Active Substance: LENVATINIB
     Dosage: 8 MG
     Route: 048
     Dates: start: 20200422

REACTIONS (5)
  - Dehydration [Recovering/Resolving]
  - Vomiting [Not Recovered/Not Resolved]
  - Asthenia [Recovering/Resolving]
  - Headache [Recovering/Resolving]
  - Nausea [Not Recovered/Not Resolved]

NARRATIVE: CASE EVENT DATE: 202004
